FAERS Safety Report 5140123-5 (Version None)
Quarter: 2006Q4

REPORT INFORMATION
  Report Type: 
  Country: None (occurrence: None)
  Receive Date: 20061025
  Receipt Date: 20061010
  Transmission Date: 20070319
  Serious: Yes (Disabling)
  Sender: FDA-Public Use
  Company Number: 35914

PATIENT
  Age: 86 Year
  Sex: Male

DRUGS (1)
  1. CIPRODEX [Suspect]
     Indication: EAR INFECTION
     Dates: start: 20060401

REACTIONS (2)
  - DEAFNESS UNILATERAL [None]
  - EAR PAIN [None]
